FAERS Safety Report 9685166 (Version 2)
Quarter: 2013Q4

REPORT INFORMATION
  Report Type: Report from Study
  Country: DE (occurrence: DE)
  Receive Date: 20131113
  Receipt Date: 20131122
  Transmission Date: 20140711
  Serious: Yes (Other)
  Sender: FDA-Public Use
  Company Number: DE-BAYER-2013-137234

PATIENT
  Sex: Female

DRUGS (1)
  1. BETAFERON [Suspect]
     Dosage: 250 ?G/ML, UNK

REACTIONS (3)
  - Muscle spasticity [Recovering/Resolving]
  - Influenza like illness [Recovering/Resolving]
  - Body temperature increased [Recovering/Resolving]
